FAERS Safety Report 10973290 (Version 18)
Quarter: 2015Q4

REPORT INFORMATION
  Report Type: Report from Study
  Country: CA (occurrence: CA)
  Receive Date: 20150401
  Receipt Date: 20151124
  Transmission Date: 20160304
  Serious: Yes (Hospitalization, Other)
  Sender: FDA-Public Use
  Company Number: CA-ROCHE-1557417

PATIENT
  Age: 36 Year
  Sex: Female
  Weight: 70 kg

DRUGS (16)
  1. DECADRON (CANADA) [Concomitant]
  2. VENLAFAXINE [Concomitant]
     Active Substance: VENLAFAXINE HYDROCHLORIDE
  3. ATIVAN [Concomitant]
     Active Substance: LORAZEPAM
  4. PROCHLORAZINE [Concomitant]
  5. HYDROMORPHONE [Concomitant]
     Active Substance: HYDROMORPHONE
  6. RISPERIDON [Concomitant]
     Active Substance: RISPERIDONE
  7. TAXOTERE [Suspect]
     Active Substance: DOCETAXEL
     Indication: HER-2 POSITIVE BREAST CANCER
     Route: 065
     Dates: start: 20140105, end: 20140505
  8. PANTOPRAZOLE [Concomitant]
     Active Substance: PANTOPRAZOLE SODIUM
  9. METOCLOP [Concomitant]
  10. KADCYLA [Suspect]
     Active Substance: ADO-TRASTUZUMAB EMTANSINE
     Indication: HER-2 POSITIVE BREAST CANCER
     Route: 042
     Dates: start: 20150326, end: 2015
  11. HERCEPTIN [Suspect]
     Active Substance: TRASTUZUMAB
     Indication: HER-2 POSITIVE BREAST CANCER
     Route: 042
     Dates: start: 20140105
  12. ZOPLICONE [Concomitant]
     Active Substance: ZOPICLONE
  13. LOPERAMIDE [Concomitant]
     Active Substance: LOPERAMIDE
  14. HEPARIN [Concomitant]
     Active Substance: HEPARIN SODIUM
  15. DILANTIN [Concomitant]
     Active Substance: PHENYTOIN
  16. AVELOX [Concomitant]
     Active Substance: MOXIFLOXACIN HYDROCHLORIDE

REACTIONS (40)
  - Carcinoembryonic antigen increased [Unknown]
  - Dysuria [Recovering/Resolving]
  - Phlebitis [Not Recovered/Not Resolved]
  - Visual impairment [Unknown]
  - Lymphocyte count decreased [Unknown]
  - Psychiatric symptom [Unknown]
  - Aspartate aminotransferase increased [Unknown]
  - Heart rate increased [Unknown]
  - Catheter site pain [Not Recovered/Not Resolved]
  - Blood test abnormal [Unknown]
  - Blood alkaline phosphatase increased [Unknown]
  - Glomerular filtration rate increased [Not Recovered/Not Resolved]
  - Blood magnesium decreased [Unknown]
  - Stress [Unknown]
  - Haemoglobin decreased [Unknown]
  - Blood lactate dehydrogenase increased [Unknown]
  - Overdose [Unknown]
  - Fatigue [Not Recovered/Not Resolved]
  - Blood chloride decreased [Unknown]
  - Heart rate increased [Unknown]
  - Thrombosis in device [Recovered/Resolved]
  - Gait disturbance [Unknown]
  - Neutrophil count increased [Unknown]
  - Peripheral swelling [Not Recovered/Not Resolved]
  - Blood sodium decreased [Unknown]
  - Red cell distribution width increased [Unknown]
  - Fall [Unknown]
  - Alanine aminotransferase increased [Unknown]
  - Visual acuity reduced [Not Recovered/Not Resolved]
  - Proctalgia [Unknown]
  - Malaise [Not Recovered/Not Resolved]
  - Medication error [Unknown]
  - Asthenia [Not Recovered/Not Resolved]
  - Therapy responder [Unknown]
  - Thrombosis [Recovering/Resolving]
  - Gamma-glutamyltransferase increased [Not Recovered/Not Resolved]
  - Seizure [Not Recovered/Not Resolved]
  - Rectal abscess [Recovered/Resolved]
  - White blood cell count increased [Unknown]
  - Mean cell haemoglobin decreased [Unknown]

NARRATIVE: CASE EVENT DATE: 2015
